FAERS Safety Report 21921234 (Version 1)
Quarter: 2023Q1

REPORT INFORMATION
  Report Type: Spontaneous
  Country: JP (occurrence: JP)
  Receive Date: 20230127
  Receipt Date: 20230127
  Transmission Date: 20230418
  Serious: Yes (Hospitalization)
  Sender: FDA-Public Use
  Company Number: JP-DSJP-DSJ-2023-103041

PATIENT
  Age: 6 Decade
  Sex: Male
  Weight: 70 kg

DRUGS (6)
  1. OLMESARTAN MEDOXOMIL [Suspect]
     Active Substance: OLMESARTAN MEDOXOMIL
     Indication: Product used for unknown indication
     Dosage: 10 MG, QD, AFTER BREAKFAST
     Route: 065
  2. WARFARIN POTASSIUM [Concomitant]
     Active Substance: WARFARIN POTASSIUM
     Dosage: 4 MG, QD, AFTER BREAKFAST
     Route: 065
  3. ASPIRIN [Concomitant]
     Active Substance: ASPIRIN
     Dosage: 100 MG, QD, AFTER BREAKFAST
     Route: 065
  4. DILTIAZEM HYDROCHLORIDE [Concomitant]
     Active Substance: DILTIAZEM HYDROCHLORIDE
     Dosage: 100 MG, QD, AFTER BREAKFAST
     Route: 065
  5. EPZICOM [Concomitant]
     Active Substance: ABACAVIR SULFATE\LAMIVUDINE
     Dosage: 1 DF, QD, IMMEDIATELY AFTER DINNER
     Route: 065
  6. EDURANT [Concomitant]
     Active Substance: RILPIVIRINE HYDROCHLORIDE
     Dosage: 25 MG, QD, IMMEDIATELY AFTER DINNER
     Route: 065

REACTIONS (1)
  - Oesophageal ulcer haemorrhage [Recovering/Resolving]
